FAERS Safety Report 12700258 (Version 1)
Quarter: 2016Q3

REPORT INFORMATION
  Report Type: Spontaneous
  Country: US (occurrence: US)
  Receive Date: 20160830
  Receipt Date: 20160830
  Transmission Date: 20161109
  Serious: No
  Sender: FDA-Public Use
  Company Number: US-SA-2015SA121001

PATIENT
  Age: 50 Year
  Sex: Female
  Weight: 104.5 kg

DRUGS (18)
  1. FABRAZYME [Suspect]
     Active Substance: AGALSIDASE BETA
     Indication: LIPIDOSIS
     Route: 042
     Dates: start: 20110510
  2. DIPHENHYDRAMINE. [Concomitant]
     Active Substance: DIPHENHYDRAMINE
     Dosage: 50 MG/ML PRIOR IV DOSE:500 MILLIGRAM(S)/MILLILITRE
     Route: 042
     Dates: start: 20150609
  3. CYANOCOBALAMIN. [Concomitant]
     Active Substance: CYANOCOBALAMIN
     Dosage: 1000 MCG MONTHLY UD
     Dates: start: 20121011
  4. NORMAL SALINE [Concomitant]
     Active Substance: SODIUM CHLORIDE
     Dosage: 0.9% DILU/FLUSH IV
     Route: 042
     Dates: start: 20150609
  5. SODIUM CHLORIDE. [Concomitant]
     Active Substance: SODIUM CHLORIDE
     Dosage: 0.9% FLUSH IV
     Route: 042
     Dates: start: 20150609
  6. LORATADINE. [Concomitant]
     Active Substance: LORATADINE
     Route: 048
     Dates: start: 20140912
  7. PERCOCET [Concomitant]
     Active Substance: ACETAMINOPHEN\OXYCODONE HYDROCHLORIDE
     Dosage: 5-325 MG, 2 TABS Q4-6HP
     Dates: start: 20150722
  8. LISINOPRIL. [Concomitant]
     Active Substance: LISINOPRIL
     Route: 048
     Dates: start: 20110526
  9. HEPARIN [Concomitant]
     Active Substance: HEPARIN SODIUM
     Dosage: 10UN/ML FLUSH
     Route: 042
     Dates: start: 20150609
  10. WATER FOR INJECTION [Concomitant]
     Active Substance: WATER
     Dosage: RECON UD
     Dates: start: 20150609
  11. EPIPEN [Concomitant]
     Active Substance: EPINEPHRINE
     Dosage: 0.3 MG PRN ANA IM
     Route: 030
     Dates: start: 20150609
  12. ACYCLOVIR. [Concomitant]
     Active Substance: ACYCLOVIR
     Route: 048
     Dates: start: 20141216
  13. PROMETHAZINE [Concomitant]
     Active Substance: PROMETHAZINE\PROMETHAZINE HYDROCHLORIDE
     Dosage: 25 MG Q8HP PO
     Route: 048
     Dates: start: 20140722
  14. KETOPROFEN. [Concomitant]
     Active Substance: KETOPROFEN
     Dosage: 1 DOSE UD PO
     Route: 048
     Dates: start: 20111107
  15. NEXIUM [Concomitant]
     Active Substance: ESOMEPRAZOLE MAGNESIUM
     Route: 048
     Dates: start: 20110526
  16. FABRAZYME [Suspect]
     Active Substance: AGALSIDASE BETA
     Indication: LIPIDOSIS
     Route: 042
     Dates: start: 20110510
  17. ALLOPURINOL. [Concomitant]
     Active Substance: ALLOPURINOL
     Route: 048
     Dates: start: 20121011
  18. FOLIC ACID. [Concomitant]
     Active Substance: FOLIC ACID
     Dosage: QOD
     Route: 048
     Dates: start: 20121011

REACTIONS (2)
  - Oral mucosal blistering [Unknown]
  - Pyrexia [Unknown]
